FAERS Safety Report 16221303 (Version 1)
Quarter: 2019Q2

REPORT INFORMATION
  Report Type: Spontaneous
  Country: US (occurrence: US)
  Receive Date: 20190422
  Receipt Date: 20190422
  Transmission Date: 20190711
  Serious: No
  Sender: FDA-Public Use
  Company Number: US-ELI_LILLY_AND_COMPANY-US201904008802

PATIENT
  Sex: Male

DRUGS (3)
  1. BASAGLAR [Suspect]
     Active Substance: INSULIN GLARGINE
     Dosage: 17 IU, DAILY
     Route: 065
  2. BASAGLAR [Suspect]
     Active Substance: INSULIN GLARGINE
     Indication: BLOOD GLUCOSE INCREASED
     Dosage: 17 IU, DAILY
     Route: 065
     Dates: start: 2014
  3. BASAGLAR [Suspect]
     Active Substance: INSULIN GLARGINE
     Dosage: 17 IU, DAILY
     Route: 065

REACTIONS (1)
  - Accidental underdose [Recovering/Resolving]

NARRATIVE: CASE EVENT DATE: 20190415
